FAERS Safety Report 19955368 (Version 3)
Quarter: 2022Q1

REPORT INFORMATION
  Report Type: Report from Study
  Country: US (occurrence: US)
  Receive Date: 20211013
  Receipt Date: 20220115
  Transmission Date: 20220423
  Serious: Yes (Hospitalization, Other)
  Sender: FDA-Public Use
  Company Number: US-REGENERON PHARMACEUTICALS, INC.-2021-91976

PATIENT
  Age: 13 Year
  Sex: Female

DRUGS (1)
  1. CASIRIVIMAB\IMDEVIMAB [Suspect]
     Active Substance: CASIRIVIMAB\IMDEVIMAB
     Indication: COVID-19
     Dosage: 1200 MG, SINGLE
     Route: 042
     Dates: start: 20210930, end: 20210930

REACTIONS (15)
  - Back pain [Unknown]
  - Hypophagia [Recovered/Resolved]
  - Pain in extremity [Recovered/Resolved]
  - Oxygen saturation decreased [Recovered/Resolved]
  - Hypotension [Recovered/Resolved]
  - Respiratory distress [Recovered/Resolved]
  - Rash erythematous [Unknown]
  - Rash macular [Unknown]
  - Multisystem inflammatory syndrome in children [Recovering/Resolving]
  - Conjunctivitis [Unknown]
  - White blood cell count increased [Unknown]
  - Platelet count decreased [Unknown]
  - Lymphopenia [Unknown]
  - Inflammatory marker increased [Unknown]
  - Infusion related reaction [Recovered/Resolved]

NARRATIVE: CASE EVENT DATE: 20211002
